FAERS Safety Report 17898700 (Version 1)
Quarter: 2020Q2

REPORT INFORMATION
  Report Type: Spontaneous
  Country: FR (occurrence: FR)
  Receive Date: 20200615
  Receipt Date: 20200615
  Transmission Date: 20200714
  Serious: Yes (Other)
  Sender: FDA-Public Use
  Company Number: FR-JNJFOC-20200607814

PATIENT
  Age: 47 Year
  Sex: Female
  Weight: 48.5 kg

DRUGS (11)
  1. AMIKACINE                          /00391001/ [Suspect]
     Active Substance: AMIKACIN
     Route: 042
     Dates: start: 20180219, end: 20180219
  2. CALCIPARINE [Suspect]
     Active Substance: HEPARIN CALCIUM
     Indication: ATRIAL FIBRILLATION
     Route: 058
     Dates: start: 20180223, end: 20180228
  3. HALDOL [Suspect]
     Active Substance: HALOPERIDOL
     Indication: AGITATION
     Route: 042
     Dates: start: 20180227, end: 20180302
  4. AMIKACINE                          /00391001/ [Suspect]
     Active Substance: AMIKACIN
     Indication: ENDOCARDITIS
     Dosage: ; IN TOTAL
     Route: 042
     Dates: start: 20180301, end: 20180301
  5. AMIKACINE                          /00391001/ [Suspect]
     Active Substance: AMIKACIN
     Route: 042
     Dates: start: 20180221, end: 20180222
  6. HEPARINE SODIQUE [Suspect]
     Active Substance: HEPARIN SODIUM
     Indication: ATRIAL FIBRILLATION
     Route: 042
     Dates: start: 20180227, end: 20180307
  7. MEROPENEM PANPHARMA [Suspect]
     Active Substance: MEROPENEM
     Indication: ENDOCARDITIS
     Route: 042
     Dates: start: 20180226, end: 20180304
  8. CEFOTAXIME                         /00497602/ [Suspect]
     Active Substance: CEFOTAXIME SODIUM
     Route: 065
     Dates: start: 20180304, end: 20180312
  9. CORDARONE [Concomitant]
     Active Substance: AMIODARONE HYDROCHLORIDE
     Route: 042
     Dates: start: 20180217
  10. RISPERDAL [Suspect]
     Active Substance: RISPERIDONE
     Indication: AGITATION
     Route: 065
  11. ZOVIRAX [Suspect]
     Active Substance: ACYCLOVIR
     Indication: HERPES VIRUS INFECTION
     Route: 048
     Dates: start: 20180305, end: 20180308

REACTIONS (3)
  - Incorrect route of product administration [Unknown]
  - Toxic skin eruption [Recovered/Resolved]
  - Off label use [Unknown]

NARRATIVE: CASE EVENT DATE: 20180227
